FAERS Safety Report 21199321 (Version 3)
Quarter: 2022Q3

REPORT INFORMATION
  Report Type: Spontaneous
  Country: CA (occurrence: CA)
  Receive Date: 20220811
  Receipt Date: 20220917
  Transmission Date: 20221026
  Serious: Yes (Other)
  Sender: FDA-Public Use
  Company Number: CA-CELLTRION INC.-2022CA012772

PATIENT

DRUGS (4)
  1. INFLECTRA [Suspect]
     Active Substance: INFLIXIMAB-DYYB
     Indication: Crohn^s disease
     Dosage: 5 MG/KG, EVERY 8 WEEK (INDUCTION WEEK 0 , 2, 6 THEN MAINTENANCE EVERY 8 WEEKS)
     Route: 042
     Dates: start: 20220715
  2. INFLECTRA [Suspect]
     Active Substance: INFLIXIMAB-DYYB
     Dosage: 5 MG/KG, EVERY 8 WEEK (INDUCTION WEEK 0 , 2, 6 THEN MAINTENANCE EVERY 8 WEEKS)
     Route: 042
     Dates: start: 20220729
  3. INFLECTRA [Suspect]
     Active Substance: INFLIXIMAB-DYYB
     Dosage: 5 MG/KG, EVERY 8 WEEK (INDUCTION WEEK 0 , 2, 6 THEN MAINTENANCE EVERY 8 WEEKS)
     Route: 042
     Dates: start: 20220826
  4. PREDNISONE [Concomitant]
     Active Substance: PREDNISONE
     Dosage: 1 DF

REACTIONS (3)
  - Uveitis [Not Recovered/Not Resolved]
  - Condition aggravated [Recovering/Resolving]
  - Arthralgia [Not Recovered/Not Resolved]

NARRATIVE: CASE EVENT DATE: 20220715
